FAERS Safety Report 6763615-1 (Version None)
Quarter: 2010Q2

REPORT INFORMATION
  Report Type: 
  Country: None (occurrence: None)
  Receive Date: 20100610
  Receipt Date: 20100602
  Transmission Date: 20101027
  Serious: Yes (Hospitalization, Other)
  Sender: FDA-Public Use
  Company Number: PHHO2010JP08364

PATIENT
  Sex: Male
  Weight: 52 kg

DRUGS (16)
  1. ALISKIREN [Suspect]
     Indication: CARDIAC FAILURE
     Dosage: 150 MG, QD
     Route: 048
     Dates: start: 20100512, end: 20100526
  2. ALISKIREN [Suspect]
     Dosage: 150 MG, QD
     Route: 048
     Dates: start: 20100602
  3. BLINDED ALISKIREN ALI+TAB+CF [Suspect]
     Indication: CARDIAC FAILURE
     Dosage: NO TREATMENT
     Route: 048
  4. BLINDED ENALAPRIL COMP-ENA+ [Suspect]
     Indication: CARDIAC FAILURE
     Dosage: NO TREATMENT
     Route: 048
  5. BLINDED NO TREATMENT RECEIVED NOMED [Suspect]
     Indication: CARDIAC FAILURE
     Dosage: NO TREATMENT
     Route: 048
  6. COMPARATOR ENALAPRIL [Suspect]
     Indication: CARDIAC FAILURE
     Dosage: 10 MG, QD
     Route: 048
     Dates: start: 20100407, end: 20100420
  7. COMPARATOR ENALAPRIL [Suspect]
     Dosage: 20 MG, QD
     Route: 048
     Dates: start: 20100421
  8. ASPIRIN [Concomitant]
  9. PLAVIX [Concomitant]
  10. TAKEPRON [Concomitant]
  11. ACARDI [Concomitant]
  12. LASIX [Concomitant]
  13. ARTIST [Concomitant]
  14. SIGMART [Concomitant]
  15. PITAVASTATIN CALCIUM [Concomitant]
  16. LENDORMIN [Concomitant]

REACTIONS (1)
  - CORONARY ARTERY RESTENOSIS [None]
